FAERS Safety Report 15493549 (Version 1)
Quarter: 2018Q4

REPORT INFORMATION
  Report Type: Spontaneous
  Country: US (occurrence: US)
  Receive Date: 20181004
  Receipt Date: 20181004
  Transmission Date: 20190205
  Serious: Yes (Life-Threatening, Hospitalization)
  Sender: FDA-Public Use
  Company Number: None

PATIENT
  Age: 57 Year
  Sex: Female
  Weight: 43.65 kg

DRUGS (15)
  1. ZOFRAN [Concomitant]
     Active Substance: ONDANSETRON HYDROCHLORIDE
  2. FERRLECIT [Suspect]
     Active Substance: SODIUM FERRIC GLUCONATE COMPLEX
     Indication: IRON DEFICIENCY
     Route: 041
  3. LEXAPRO [Concomitant]
     Active Substance: ESCITALOPRAM OXALATE
  4. ATIVAN [Concomitant]
     Active Substance: LORAZEPAM
  5. DILAUDID [Concomitant]
     Active Substance: HYDROMORPHONE HYDROCHLORIDE
  6. CARAFATE [Concomitant]
     Active Substance: SUCRALFATE
  7. DURAGESIC [Concomitant]
     Active Substance: FENTANYL
  8. VIMPAT [Concomitant]
     Active Substance: LACOSAMIDE
  9. LYRICA [Concomitant]
     Active Substance: PREGABALIN
  10. PLAVIX [Concomitant]
     Active Substance: CLOPIDOGREL BISULFATE
  11. ZOCOR [Concomitant]
     Active Substance: SIMVASTATIN
  12. LINZESS [Concomitant]
     Active Substance: LINACLOTIDE
  13. ASPIRIN. [Concomitant]
     Active Substance: ASPIRIN
  14. PROTONIX [Concomitant]
     Active Substance: PANTOPRAZOLE SODIUM
  15. RELISTOR [Concomitant]
     Active Substance: METHYLNALTREXONE BROMIDE

REACTIONS (7)
  - Depressed level of consciousness [None]
  - Blood pressure decreased [None]
  - Heart rate increased [None]
  - Syncope [None]
  - Pallor [None]
  - Hyperhidrosis [None]
  - Blood pressure immeasurable [None]

NARRATIVE: CASE EVENT DATE: 20181002
